FAERS Safety Report 12261097 (Version 1)
Quarter: 2016Q2

REPORT INFORMATION
  Report Type: Spontaneous
  Country: None (occurrence: None)
  Receive Date: 20160412
  Receipt Date: 20160412
  Transmission Date: 20160815
  Serious: No
  Sender: FDA-Public Use
  Company Number: None

PATIENT
  Age: 64 Year
  Sex: Female

DRUGS (1)
  1. COPAXONE [Suspect]
     Active Substance: GLATIRAMER ACETATE
     Dosage: 40MG THRE TIMES WE  SQ
     Route: 058

REACTIONS (3)
  - Injection site pain [None]
  - Multiple sclerosis relapse [None]
  - Heart rate increased [None]

NARRATIVE: CASE EVENT DATE: 20160411
